FAERS Safety Report 22213801 (Version 2)
Quarter: 2023Q2

REPORT INFORMATION
  Report Type: Report from Study
  Country: US (occurrence: US)
  Receive Date: 20230414
  Receipt Date: 20230512
  Transmission Date: 20230722
  Serious: Yes (Life-Threatening, Hospitalization)
  Sender: FDA-Public Use
  Company Number: US-BEH-2023157430

PATIENT
  Sex: Male
  Weight: 59 kg

DRUGS (10)
  1. BERIPLEX P/N [Suspect]
     Active Substance: COAGULATION FACTOR IX HUMAN\COAGULATION FACTOR VII HUMAN\COAGULATION FACTOR X HUMAN\PROTEIN C\PROTEI
     Indication: Traumatic haemorrhage
     Dosage: 2000 INTERNATIONAL UNIT, SINGLE
     Route: 042
     Dates: start: 20230404, end: 20230404
  2. BERIPLEX P/N [Suspect]
     Active Substance: COAGULATION FACTOR IX HUMAN\COAGULATION FACTOR VII HUMAN\COAGULATION FACTOR X HUMAN\PROTEIN C\PROTEI
     Indication: Traumatic haemorrhage
     Dosage: 2000 INTERNATIONAL UNIT, SINGLE
     Route: 042
     Dates: start: 20230404, end: 20230404
  3. PLACEBO [Suspect]
     Active Substance: UNSPECIFIED INGREDIENT
     Indication: Traumatic haemorrhage
     Dosage: 2000 INTERNATIONAL UNIT, SINGLE
     Route: 042
     Dates: start: 20230404, end: 20230404
  4. PLACEBO [Suspect]
     Active Substance: UNSPECIFIED INGREDIENT
     Indication: Traumatic haemorrhage
     Dosage: 2000 INTERNATIONAL UNIT, SINGLE
     Route: 042
     Dates: start: 20230404, end: 20230404
  5. LACTATED RINGERS SOLUTION [Concomitant]
     Active Substance: CALCIUM CHLORIDE\POTASSIUM CHLORIDE\SODIUM CHLORIDE\SODIUM LACTATE
     Indication: Traumatic haemorrhage
     Dosage: 300 MILLILITER, TOT
     Dates: start: 20230405
  6. LACTATED RINGERS SOLUTION [Concomitant]
     Active Substance: CALCIUM CHLORIDE\POTASSIUM CHLORIDE\SODIUM CHLORIDE\SODIUM LACTATE
     Dosage: 1000 MILLILITER, TOT
     Dates: start: 20230405
  7. WHOLE BLOOD ACD [Concomitant]
     Indication: Traumatic haemorrhage
     Dosage: 500 MILLILITER, SINGLE
     Route: 042
     Dates: start: 20230404
  8. WHOLE BLOOD ACD [Concomitant]
     Dosage: 500 MILLILITER, SINGLE
     Route: 042
     Dates: start: 20230404
  9. WHOLE BLOOD ACD [Concomitant]
     Dosage: 500 MILLILITER, SINGLE
     Route: 042
     Dates: start: 20230404
  10. ALBUMIN HUMAN [Concomitant]
     Active Substance: ALBUMIN HUMAN
     Indication: Traumatic haemorrhage
     Dosage: 250 MILLILITER
     Dates: start: 20230405

REACTIONS (1)
  - Coronary artery thrombosis [Not Recovered/Not Resolved]

NARRATIVE: CASE EVENT DATE: 20230406
